FAERS Safety Report 4264844-1 (Version None)
Quarter: 2004Q1

REPORT INFORMATION
  Report Type: 
  Country: None (occurrence: None)
  Receive Date: 20040105
  Receipt Date: 20031216
  Transmission Date: 20041129
  Serious: Yes (Hospitalization)
  Sender: FDA-Public Use
  Company Number: STA-AE-03-MTX-168

PATIENT
  Age: 68 Year
  Sex: Female

DRUGS (1)
  1. METHOTREXATE [Suspect]
     Indication: RHEUMATOID ARTHRITIS
     Dosage: 2.5 MG 1X MER 1 DAY/ORAL
     Route: 048
     Dates: end: 20030826

REACTIONS (3)
  - ANAEMIA MACROCYTIC [None]
  - PRESCRIBED OVERDOSE [None]
  - THROMBOCYTOPENIA [None]
